FAERS Safety Report 19394380 (Version 1)
Quarter: 2021Q2

REPORT INFORMATION
  Report Type: Report from Study
  Country: DE (occurrence: DE)
  Receive Date: 20210609
  Receipt Date: 20210609
  Transmission Date: 20210717
  Serious: Yes (Hospitalization)
  Sender: FDA-Public Use
  Company Number: DE-GW PHARMA-201903DEGW0589

PATIENT

DRUGS (8)
  1. LAMOTRIGIN [Concomitant]
     Active Substance: LAMOTRIGINE
     Indication: EPILEPSY
     Dosage: 600 MILLIGRAM, QD (200 MG TID)
     Route: 065
  2. EPIDIOLEX [Interacting]
     Active Substance: CANNABIDIOL
     Dosage: 13.3MG/KG, 1000 MILLIGRAM, QD
     Route: 048
     Dates: start: 20190405
  3. CLOBAZAM. [Interacting]
     Active Substance: CLOBAZAM
     Dosage: DOSE REDUCED
     Route: 065
     Dates: start: 20190308
  4. PHENYTOIN. [Interacting]
     Active Substance: PHENYTOIN
     Dosage: DOSE REDUCED
     Dates: start: 20190308
  5. TOPIRAMAT [Concomitant]
     Active Substance: TOPIRAMATE
     Indication: EPILEPSY
     Dosage: 450 MILLIGRAM, QD (150 MG TID)
     Route: 065
  6. EPIDIOLEX [Suspect]
     Active Substance: CANNABIDIOL
     Indication: EPILEPSY
     Dosage: 10 MG/KG, 750 MILLIGRAM, QD (500MG AM; 250MG PM)
     Route: 048
     Dates: start: 20190207, end: 20190404
  7. PHENYTOIN. [Interacting]
     Active Substance: PHENYTOIN
     Indication: EPILEPSY
     Dosage: 200 MILLIGRAM, QD (100 MG BID)
     Route: 065
  8. CLOBAZAM. [Interacting]
     Active Substance: CLOBAZAM
     Indication: EPILEPSY
     Dosage: 30 MILLIGRAM, QD (10 MG TID)
     Route: 065

REACTIONS (3)
  - Fall [Recovered/Resolved]
  - Drug interaction [Unknown]
  - Somnolence [Recovered/Resolved]

NARRATIVE: CASE EVENT DATE: 20190301
